FAERS Safety Report 23187927 (Version 3)
Quarter: 2023Q4

REPORT INFORMATION
  Report Type: Spontaneous
  Country: JP (occurrence: JP)
  Receive Date: 20231115
  Receipt Date: 20231129
  Transmission Date: 20240110
  Serious: Yes (Other)
  Sender: FDA-Public Use
  Company Number: JP-Eisai-202309448_LEN-EC_P_1

PATIENT
  Sex: Female

DRUGS (3)
  1. LENVIMA [Suspect]
     Active Substance: LENVATINIB
     Indication: Endometrial cancer
     Route: 048
  2. LENVIMA [Suspect]
     Active Substance: LENVATINIB
     Route: 048
  3. KEYTRUDA [Suspect]
     Active Substance: PEMBROLIZUMAB
     Indication: Endometrial cancer
     Dosage: UNKNOWN DOSE AND FREQUENCY
     Route: 041

REACTIONS (3)
  - Interstitial lung disease [Recovered/Resolved]
  - Lymphadenopathy [Recovered/Resolved]
  - Hypothyroidism [Recovered/Resolved]
